FAERS Safety Report 12363431 (Version 1)
Quarter: 2016Q2

REPORT INFORMATION
  Report Type: Spontaneous
  Country: US (occurrence: None)
  Receive Date: 20160512
  Receipt Date: 20160512
  Transmission Date: 20160815
  Serious: No
  Sender: FDA-Public Use
  Company Number: None

PATIENT
  Age: 72 Year
  Sex: Male

DRUGS (2)
  1. VANCOMYCIN [Suspect]
     Active Substance: VANCOMYCIN
     Indication: ARTHROPATHY
     Route: 042
     Dates: start: 20160426
  2. PIPERACILLIN/TAZO [Suspect]
     Active Substance: PIPERACILLIN SODIUM\TAZOBACTAM SODIUM
     Indication: ARTHROPATHY
     Route: 042
     Dates: start: 20160426

REACTIONS (1)
  - Rash [None]

NARRATIVE: CASE EVENT DATE: 20160504
